FAERS Safety Report 4542853-2 (Version None)
Quarter: 2004Q4

REPORT INFORMATION
  Report Type: 
  Country: None (occurrence: None)
  Receive Date: 20041229
  Receipt Date: 20041213
  Transmission Date: 20050328
  Serious: Yes (Hospitalization)
  Sender: FDA-Public Use
  Company Number: 2004BI001468

PATIENT
  Age: 38 Year
  Sex: Female
  Weight: 61.2356 kg

DRUGS (4)
  1. AVONEX [Suspect]
     Indication: MULTIPLE SCLEROSIS
     Dosage: 30 UG;QW;IM
     Route: 030
     Dates: start: 20040601
  2. XANAX [Concomitant]
  3. ZOLOFT [Concomitant]
  4. MECLIZINE [Concomitant]

REACTIONS (5)
  - CLAVICLE FRACTURE [None]
  - COLLAPSE OF LUNG [None]
  - FALL [None]
  - INFLUENZA LIKE ILLNESS [None]
  - RIB FRACTURE [None]
